FAERS Safety Report 4444595-0 (Version None)
Quarter: 2004Q3

REPORT INFORMATION
  Report Type: 
  Country: None (occurrence: None)
  Receive Date: 20040902
  Receipt Date: 20040825
  Transmission Date: 20050211
  Serious: Yes (Death, Hospitalization)
  Sender: FDA-Public Use
  Company Number: 2004223931US

PATIENT
  Age: 76 Year
  Sex: Male
  Weight: 86.2 kg

DRUGS (4)
  1. ESTRACYTE (ESTRAMUSTINE PHOSPHATE) CAPSULE [Suspect]
     Indication: PROSTATE CANCER
     Dosage: 280 MG, TID
     Dates: start: 20040628, end: 20040711
  2. COMPARATOR-ETOPOSIDE (ETOPOSIDE, ETOPOSIDE) CAPSULE [Suspect]
     Indication: PROSTATE CANCER
     Dosage: 50 MG, BID
     Dates: start: 20040628, end: 20040711
  3. COMPARATOR-PACLITAXEL (PACLITAXEL, PACLITAXEL) INJECTION [Suspect]
     Indication: PROSTATE CANCER
     Dosage: 270 MG
     Dates: start: 20040629
  4. COMPARATOR-WARFARIN (WARFARIN, WARFARIN) TABLET [Suspect]
     Dosage: 3 MG, QD

REACTIONS (11)
  - ABASIA [None]
  - ASTHENIA [None]
  - COMA [None]
  - FALL [None]
  - FEBRILE NEUTROPENIA [None]
  - GENERAL PHYSICAL HEALTH DETERIORATION [None]
  - HYPOTENSION [None]
  - MYOCARDIAL ISCHAEMIA [None]
  - NEUTROPENIC SEPSIS [None]
  - THROMBOCYTOPENIA [None]
  - WHITE BLOOD CELL COUNT DECREASED [None]
